FAERS Safety Report 11908816 (Version 1)
Quarter: 2016Q1

REPORT INFORMATION
  Report Type: Report from Study
  Country: US (occurrence: US)
  Receive Date: 20160111
  Receipt Date: 20160111
  Transmission Date: 20160526
  Serious: Yes (Hospitalization)
  Sender: FDA-Public Use
  Company Number: US-TAKEDA-2016TUS000182

PATIENT
  Sex: Male

DRUGS (1)
  1. VEDOLIZUMAB [Suspect]
     Active Substance: VEDOLIZUMAB
     Indication: PRODUCT USED FOR UNKNOWN INDICATION
     Dosage: UNK
     Route: 065
     Dates: start: 201502, end: 201502

REACTIONS (6)
  - Gait disturbance [Unknown]
  - Eye infection [Unknown]
  - Erythema [Unknown]
  - Skin exfoliation [Unknown]
  - Blood urine present [Unknown]
  - Rash [Unknown]
